FAERS Safety Report 7470561-7 (Version None)
Quarter: 2011Q2

REPORT INFORMATION
  Report Type: 
  Country: None (occurrence: None)
  Receive Date: 20110510
  Receipt Date: 20110506
  Transmission Date: 20111010
  Serious: Yes (Hospitalization)
  Sender: FDA-Public Use
  Company Number: US-B.I. PHARMACEUTICALS,INC./RIDGEFIELD-2011-BP-12536BP

PATIENT
  Sex: Female

DRUGS (6)
  1. CHOLESTAGEL [Concomitant]
     Dosage: 3 G
     Route: 048
  2. POTASSIUM [Concomitant]
     Indication: ELECTROLYTE SUBSTITUTION THERAPY
     Route: 048
  3. ADVAIR DISKUS 100/50 [Concomitant]
     Indication: CHRONIC OBSTRUCTIVE PULMONARY DISEASE
     Route: 055
  4. SPIRIVA [Suspect]
     Indication: CHRONIC OBSTRUCTIVE PULMONARY DISEASE
     Dosage: 18 MCG
     Route: 055
  5. ASPIRIN [Concomitant]
     Indication: ROUTINE HEALTH MAINTENANCE
     Dosage: 81 MG
     Route: 048
  6. RANEXA [Concomitant]
     Dosage: 200 MG
     Route: 048

REACTIONS (11)
  - PNEUMONIA [None]
  - CARDIAC DISORDER [None]
  - OSTEOPOROSIS [None]
  - LOCALISED INFECTION [None]
  - DIABETES MELLITUS [None]
  - HEART RATE IRREGULAR [None]
  - DEPRESSION [None]
  - THYROID DISORDER [None]
  - ATRIAL FIBRILLATION [None]
  - BLOOD CHOLESTEROL INCREASED [None]
  - OEDEMA [None]
